FAERS Safety Report 9306261 (Version 1)
Quarter: 2013Q2

REPORT INFORMATION
  Report Type: Spontaneous
  Country: US (occurrence: US)
  Receive Date: 20130523
  Receipt Date: 20130523
  Transmission Date: 20140414
  Serious: Yes (Other)
  Sender: FDA-Public Use
  Company Number: US-PFIZER INC-2013157289

PATIENT
  Age: 83 Year
  Sex: Female
  Weight: 66.67 kg

DRUGS (6)
  1. CELEBREX [Suspect]
     Indication: OSTEOARTHRITIS
     Dosage: 400 MG, 1X/DAY
     Route: 048
  2. ACETYLSALICYLIC ACID [Suspect]
     Indication: BLOOD CHOLESTEROL ABNORMAL
     Dosage: 81 MG, DAILY
  3. ENALAPRIL [Concomitant]
     Indication: CARDIAC DISORDER
     Dosage: 10 MG, 1X/DAY
  4. TOPROL [Concomitant]
     Indication: CARDIAC DISORDER
     Dosage: 150 MG, 1X/DAY
  5. AMLODIPINE [Concomitant]
     Indication: HYPERTENSION
     Dosage: 5 MG, 1X/DAY
  6. NIACIN [Concomitant]
     Indication: BLOOD CHOLESTEROL ABNORMAL
     Dosage: 2000 MG, 1X/DAY

REACTIONS (2)
  - Haemorrhage [Unknown]
  - Bone disorder [Not Recovered/Not Resolved]
